FAERS Safety Report 9852811 (Version 1)
Quarter: 2014Q1

REPORT INFORMATION
  Report Type: Spontaneous
  Country: US (occurrence: None)
  Receive Date: 20140128
  Receipt Date: 20140128
  Transmission Date: 20141002
  Serious: Yes (Hospitalization)
  Sender: FDA-Public Use
  Company Number: None

PATIENT
  Age: 8 Year
  Sex: Female
  Weight: 18 kg

DRUGS (1)
  1. MELPHALAN [Suspect]

REACTIONS (7)
  - Pulmonary haemorrhage [None]
  - Pleural effusion [None]
  - Atelectasis [None]
  - Pulmonary mass [None]
  - Pneumonia [None]
  - Septic embolus [None]
  - Septic shock [None]
